FAERS Safety Report 6317427-3 (Version None)
Quarter: 2009Q3

REPORT INFORMATION
  Report Type: 
  Country: None (occurrence: None)
  Receive Date: 20090821
  Receipt Date: 20090810
  Transmission Date: 20100115
  Serious: Yes (Hospitalization)
  Sender: FDA-Public Use
  Company Number: US-JNJFOC-20090803154

PATIENT
  Age: 47 Year
  Sex: Male

DRUGS (8)
  1. REMICADE [Suspect]
     Dosage: 2ND INFUSION 6 WEEKS AGO
     Route: 042
  2. REMICADE [Suspect]
     Indication: CROHN'S DISEASE
     Dosage: 1ST INFUSION 8 WEEKS AGO
     Route: 042
  3. PREDNISONE [Concomitant]
     Indication: CROHN'S DISEASE
  4. PENTASA [Concomitant]
     Indication: CROHN'S DISEASE
  5. ALBUTEROL [Concomitant]
     Indication: ASTHMA
     Route: 055
  6. SYMBICORT [Concomitant]
     Indication: ASTHMA
  7. SINGULAIR [Concomitant]
     Indication: ASTHMA
  8. TESSALON [Concomitant]
     Indication: COUGH

REACTIONS (6)
  - ASTHENIA [None]
  - ASTHMA [None]
  - DEHYDRATION [None]
  - DIZZINESS [None]
  - PYREXIA [None]
  - WHITE BLOOD CELL COUNT INCREASED [None]
